FAERS Safety Report 5558308-2 (Version None)
Quarter: 2007Q4

REPORT INFORMATION
  Report Type: 
  Country: None (occurrence: None)
  Receive Date: 20071214
  Receipt Date: 20071203
  Transmission Date: 20080405
  Serious: Yes (Other)
  Sender: FDA-Public Use
  Company Number: US-PFIZER INC-2007101644

PATIENT
  Sex: Female
  Weight: 63.636 kg

DRUGS (5)
  1. LYRICA [Suspect]
     Indication: FIBROMYALGIA
     Route: 048
  2. AMBIEN [Concomitant]
     Indication: PAIN
  3. CELEBREX [Concomitant]
     Indication: ARTHRITIS
  4. CITALOPRAM [Concomitant]
     Indication: DEPRESSION
  5. DRUG, UNSPECIFIED [Concomitant]
     Indication: DRY EYE

REACTIONS (6)
  - DYSPEPSIA [None]
  - IMPAIRED DRIVING ABILITY [None]
  - NECK PAIN [None]
  - PAIN [None]
  - VISION BLURRED [None]
  - WEIGHT DECREASED [None]
